FAERS Safety Report 17964885 (Version 1)
Quarter: 2020Q2

REPORT INFORMATION
  Report Type: Spontaneous
  Country: DE (occurrence: DE)
  Receive Date: 20200630
  Receipt Date: 20200630
  Transmission Date: 20200714
  Serious: Yes (Life-Threatening, Hospitalization)
  Sender: FDA-Public Use
  Company Number: DE-MYLANLABS-2020M1058915

PATIENT
  Age: 61 Year
  Sex: Male

DRUGS (19)
  1. ROFLUMILAST. [Concomitant]
     Active Substance: ROFLUMILAST
     Dosage: .5 MILLIGRAM, QD (0.5 MG, 1-0-0-0, TABLETTEN)
     Route: 048
  2. EPLERENONE. [Interacting]
     Active Substance: EPLERENONE
     Indication: PRODUCT USED FOR UNKNOWN INDICATION
     Dosage: 25 MILLIGRAM, QD (25 MG, 1-0-0-0, TABLETTEN)
     Route: 048
  3. XIPAMID [Concomitant]
     Active Substance: XIPAMIDE
     Dosage: 10 MILLIGRAM, QD (10 MG, 1-0-0-0, TABLETTEN)
     Route: 048
  4. METOPROLOL. [Interacting]
     Active Substance: METOPROLOL
     Indication: PRODUCT USED FOR UNKNOWN INDICATION
     Dosage: 95 MILLIGRAM, BID (95 MG, 1-0-1-0, TABLETTEN)
     Route: 048
  5. APIXABAN [Concomitant]
     Active Substance: APIXABAN
     Dosage: 5 MILLIGRAM, QD (5 MG, 1-0-1-0, TABLETTEN)
     Route: 048
  6. INSPIOLTO RESPIMAT [Concomitant]
     Active Substance: OLODATEROL HYDROCHLORIDE\TIOTROPIUM BROMIDE MONOHYDRATE
     Dosage: 2.5|2.5 MG/?G, 2-0-0-0, DOSIERAEROSOL
     Route: 055
  7. DIGITOXIN [Concomitant]
     Active Substance: DIGITOXIN
     Dosage: 0.07 MILLIGRAM, QD (0.07 MG 1-0-0-0, TABLETTEN)
     Route: 048
  8. TAMSULOSIN [Concomitant]
     Active Substance: TAMSULOSIN
     Dosage: 0.4 MILLIGRAM, QD (0.4 MG, 1-0-0-0, TABLETTEN)
     Route: 048
  9. ARFORMOTEROL [Concomitant]
     Active Substance: ARFORMOTEROL
     Dosage: NK MG, 1-0-1-0
     Route: 048
  10. ESCITALOPRAM [Suspect]
     Active Substance: ESCITALOPRAM OXALATE
     Indication: PRODUCT USED FOR UNKNOWN INDICATION
     Dosage: 20 MILLIGRAM, QD (20 MG, 1-0-0-0, TABLETTEN)
     Route: 048
  11. MACROGOL [Concomitant]
     Active Substance: POLYETHYLENE GLYCOLS
     Dosage: NK MG, 1-0-0-0
     Route: 048
  12. LEVOTHYROXINE SODIUM. [Concomitant]
     Active Substance: LEVOTHYROXINE SODIUM
     Dosage: 50 MICROGRAM (50 ?G, 0.5-0-0-0, TABLETTEN)
     Route: 048
  13. MIRTAZAPINE. [Interacting]
     Active Substance: MIRTAZAPINE
     Indication: PRODUCT USED FOR UNKNOWN INDICATION
     Dosage: 30 MILLIGRAM, QD (30 MG, 0-0-1-0, TABLETTEN)
     Route: 048
  14. PREDNISOLON                        /00016201/ [Concomitant]
     Active Substance: PREDNISOLONE
     Dosage: 30 MG, 1-0-0-0, TABLETTEN
     Route: 048
  15. PROMETHAZINE [Interacting]
     Active Substance: PROMETHAZINE HYDROCHLORIDE
     Indication: PRODUCT USED FOR UNKNOWN INDICATION
     Dosage: 20 MILLIGRAM (20 MG, 10-10-10-0, TROPFEN)
     Route: 048
  16. MORPHIN                            /00036303/ [Interacting]
     Active Substance: MORPHINE
     Indication: PRODUCT USED FOR UNKNOWN INDICATION
     Dosage: 10 MILLIGRAM, TID (10 MG, 1-1-1-0, RETARD-TABLETTEN)
     Route: 048
  17. PANTOPRAZOL                        /01263201/ [Concomitant]
     Active Substance: PANTOPRAZOLE
     Dosage: 40 MILLIGRAM, QD (40 MG, 1-0-0-0, TABLETTEN)
     Route: 048
  18. IPRATROPIUM BROMIDE. [Concomitant]
     Active Substance: IPRATROPIUM BROMIDE
     Dosage: NK MG, 5X, DOSIERAEROSOL
     Route: 055
  19. HUMALOG [Concomitant]
     Active Substance: INSULIN LISPRO
     Dosage: NK IE, NACH PLAN (100 E/ML )
     Route: 058

REACTIONS (5)
  - Cold sweat [Unknown]
  - Oedema peripheral [Unknown]
  - Hypotension [Unknown]
  - Dyspnoea [Unknown]
  - Drug interaction [Unknown]
